FAERS Safety Report 12531669 (Version 1)
Quarter: 2016Q3

REPORT INFORMATION
  Report Type: Spontaneous
  Country: KR (occurrence: KR)
  Receive Date: 20160706
  Receipt Date: 20160706
  Transmission Date: 20161109
  Serious: Yes (Hospitalization)
  Sender: FDA-Public Use
  Company Number: KR-IMPAX LABORATORIES, INC-2016-IPXL-00686

PATIENT
  Age: 43 Year
  Sex: Female

DRUGS (2)
  1. ADRENACLICK [Suspect]
     Active Substance: EPINEPHRINE
     Dosage: 1 MG, UNK
     Route: 042
  2. ADRENACLICK [Suspect]
     Active Substance: EPINEPHRINE
     Indication: PRODUCT USED FOR UNKNOWN INDICATION
     Dosage: 0.5 MG, UNK

REACTIONS (2)
  - Stress cardiomyopathy [Recovered/Resolved]
  - Accidental exposure to product [Recovered/Resolved]
